FAERS Safety Report 21741132 (Version 2)
Quarter: 2023Q2

REPORT INFORMATION
  Report Type: Spontaneous
  Country: US (occurrence: US)
  Receive Date: 20221216
  Receipt Date: 20230410
  Transmission Date: 20230722
  Serious: No
  Sender: FDA-Public Use
  Company Number: US-AVEO ONCOLOGY-2022-AVEO-US000474

PATIENT

DRUGS (13)
  1. FOTIVDA [Suspect]
     Active Substance: TIVOZANIB HYDROCHLORIDE
     Indication: Renal cell carcinoma
     Dosage: 1.34 MG, DAILY FOR 21 DAYS WITH 7 DAYS OFF (28-DAY CYCLE
     Route: 048
     Dates: end: 2022
  2. CELECOXIB [Concomitant]
     Active Substance: CELECOXIB
  3. FINASTERIDE [Concomitant]
     Active Substance: FINASTERIDE
  4. METOPROLOL SUCCINATE [Concomitant]
     Active Substance: METOPROLOL SUCCINATE
  5. NICOTINE [Concomitant]
     Active Substance: NICOTINE
     Route: 062
  6. CALCIUM [Concomitant]
     Active Substance: CALCIUM
  7. VITAMIN D [Concomitant]
     Active Substance: VITAMIN D NOS
  8. PERCOCET [Concomitant]
     Active Substance: ACETAMINOPHEN\OXYCODONE HYDROCHLORIDE
  9. PREDNISONE [Concomitant]
     Active Substance: PREDNISONE
  10. TAMSULOSIN [Concomitant]
     Active Substance: TAMSULOSIN
  11. TRIAMCINOLONE [Concomitant]
     Active Substance: TRIAMCINOLONE
  12. VITAMIN E [Concomitant]
     Active Substance: .ALPHA.-TOCOPHEROL
  13. CALCIUM\VITAMIN D [Concomitant]
     Active Substance: CALCIUM\VITAMIN D

REACTIONS (2)
  - Fatigue [Unknown]
  - Disease progression [Unknown]
